FAERS Safety Report 11458802 (Version 1)
Quarter: 2015Q3

REPORT INFORMATION
  Report Type: Spontaneous
  Country: US (occurrence: US)
  Receive Date: 20150904
  Receipt Date: 20150904
  Transmission Date: 20151125
  Serious: Yes (Disabling, Other)
  Sender: FDA-Public Use
  Company Number: US-PFIZER INC-2015256241

PATIENT
  Age: 64 Year
  Sex: Male

DRUGS (26)
  1. KLOR CON M20 [Concomitant]
     Dosage: 20 MEQ, UNK
     Route: 048
     Dates: start: 20141126
  2. LIDOCAINE. [Concomitant]
     Active Substance: LIDOCAINE
     Dosage: APPLY TO AFFECTED AREA AS DIRECTED
     Dates: start: 20120201
  3. NORVASC [Concomitant]
     Active Substance: AMLODIPINE BESYLATE
     Dosage: 5 MG, DAILY
     Route: 048
     Dates: start: 20060726
  4. LYRICA [Suspect]
     Active Substance: PREGABALIN
     Dosage: 50 MG, 2X/DAY
     Route: 048
  5. TERAZOSIN HYDROCHLORIDE. [Concomitant]
     Active Substance: TERAZOSIN HYDROCHLORIDE
     Dosage: 4 MG, AT BEDTIME
     Route: 048
     Dates: start: 20081022
  6. LYRICA [Suspect]
     Active Substance: PREGABALIN
     Indication: FIBROMYALGIA
     Dosage: 50 MG, 1X/DAY
     Route: 048
     Dates: start: 20150624
  7. LASIX [Concomitant]
     Active Substance: FUROSEMIDE
     Dosage: 40 MG, UNK
     Route: 048
     Dates: start: 20101013
  8. OMEGA 3 [Concomitant]
     Active Substance: OMEGA-3 FATTY ACIDS
     Dosage: 1000 MG, DAILY
     Route: 048
     Dates: start: 20150624
  9. POLYETHYLENE GLYCOL 3350. [Concomitant]
     Active Substance: POLYETHYLENE GLYCOL 3350
     Dosage: 17 G, DAILY
     Route: 048
     Dates: start: 20150624
  10. WARFARIN SODIUM. [Concomitant]
     Active Substance: WARFARIN SODIUM
     Dosage: 3 MG, ALTERNATE DAY
     Route: 048
     Dates: start: 20141212
  11. FERROUS SULFATE [Concomitant]
     Active Substance: FERROUS SULFATE\FERROUS SULFATE, DRIED
     Dosage: 324 MG, UNK
     Route: 048
     Dates: start: 20150624
  12. HYDROCODONE BITARTRATE AND ACETAMINOPHEN [Concomitant]
     Active Substance: ACETAMINOPHEN\HYDROCODONE BITARTRATE
     Indication: PAIN
     Dosage: 1-2 TABLETS EVERY 6 HOURS PRN
     Route: 048
     Dates: start: 20060726
  13. MAXALT [Concomitant]
     Active Substance: RIZATRIPTAN BENZOATE
     Dosage: 1 TABLET AT ONSET, REPEAT EVERY 2 HOURS AS NEEDED, MAX 3 TABLETS IN 24 HRS
     Route: 048
     Dates: start: 20121212
  14. SIMVASTATIN. [Concomitant]
     Active Substance: SIMVASTATIN
     Dosage: 40 MG, DAILY AT BEDTIME
     Route: 048
     Dates: start: 20150306
  15. TIZANIDINE HYDROCHLORIDE. [Concomitant]
     Active Substance: TIZANIDINE HYDROCHLORIDE
     Dosage: 2 MG, AS NEEDED(EVERY 6 HOURS)
     Route: 048
     Dates: start: 20100512
  16. ARAVA [Concomitant]
     Active Substance: LEFLUNOMIDE
     Dosage: 20 MG, DAILY
     Route: 048
     Dates: start: 20120817
  17. MORPHINE SULFATE ER [Concomitant]
     Active Substance: MORPHINE SULFATE
     Dosage: 30 MG, 1-2 TABS Q 12 HOURS, AS NEEDED (Q 12 HOURS)
     Route: 048
     Dates: start: 20130409
  18. VITAMIN D [Concomitant]
     Active Substance: CHOLECALCIFEROL
     Dosage: 2000 UNIT, DAILY
     Route: 048
     Dates: start: 20140312
  19. ALPRAZOLAM. [Concomitant]
     Active Substance: ALPRAZOLAM
     Dosage: 0.25 MG, 2X/DAY
     Route: 048
     Dates: start: 20121114
  20. LOSARTAN POTASSIUM. [Concomitant]
     Active Substance: LOSARTAN POTASSIUM
     Dosage: 50 MG, 2X/DAY
     Route: 048
     Dates: start: 20150421
  21. MORPHINE SULFATE ER [Concomitant]
     Active Substance: MORPHINE SULFATE
     Indication: PAIN
     Dosage: 100 MG, EVERY TWELVE HOURS
     Route: 048
     Dates: start: 20130410
  22. LYRICA [Suspect]
     Active Substance: PREGABALIN
     Indication: PAIN
     Dosage: 75 MG, 3X/DAY
     Route: 048
     Dates: start: 201506
  23. MORPHINE SULFATE ER [Concomitant]
     Active Substance: MORPHINE SULFATE
     Dosage: 15 MG, EVERY TWELVE HOURS
     Route: 048
     Dates: start: 20150624
  24. POTASSIUM CHLORIDE ER [Concomitant]
     Active Substance: POTASSIUM CHLORIDE
     Dosage: 20 MEQ, DAILY
     Route: 048
     Dates: start: 20101013
  25. WARFARIN SODIUM. [Concomitant]
     Active Substance: WARFARIN SODIUM
     Dosage: 4 MG, ALTERNATE DAY
     Route: 048
     Dates: start: 20150527
  26. METOPROLOL SUCCINATE ER [Concomitant]
     Active Substance: METOPROLOL SUCCINATE
     Dosage: 12.5 MG, DAILY
     Route: 048
     Dates: start: 20150417

REACTIONS (3)
  - Rheumatoid arthritis [Unknown]
  - Arrhythmia [Unknown]
  - Heart valve incompetence [Unknown]
